FAERS Safety Report 6846830-8 (Version None)
Quarter: 2010Q3

REPORT INFORMATION
  Report Type: 
  Country: None (occurrence: None)
  Receive Date: 20100715
  Receipt Date: 20070919
  Transmission Date: 20110219
  Serious: No
  Sender: FDA-Public Use
  Company Number: US-PFIZER INC-2007079690

PATIENT
  Sex: Female

DRUGS (3)
  1. CHANTIX [Suspect]
  2. IBANDRONATE SODIUM [Concomitant]
  3. VITAMINS [Concomitant]

REACTIONS (1)
  - DYSPEPSIA [None]
